FAERS Safety Report 7032435-5 (Version None)
Quarter: 2010Q4

REPORT INFORMATION
  Report Type: 
  Country: None (occurrence: None)
  Receive Date: 20101001
  Receipt Date: 20100917
  Transmission Date: 20110411
  Serious: Yes (Life-Threatening, Other)
  Sender: FDA-Public Use
  Company Number: APP201000761

PATIENT

DRUGS (1)
  1. ASTRAMORPH PF [Suspect]
     Indication: ANALGESIC THERAPY
     Dosage: 4 MG, 1 HR, INTRAVENOUS
     Route: 042

REACTIONS (3)
  - HYPOXIC-ISCHAEMIC ENCEPHALOPATHY [None]
  - INCORRECT DRUG ADMINISTRATION RATE [None]
  - UNRESPONSIVE TO STIMULI [None]
